FAERS Safety Report 4888075-7 (Version None)
Quarter: 2006Q1

REPORT INFORMATION
  Report Type: 
  Country: None (occurrence: None)
  Receive Date: 20060119
  Receipt Date: 20060112
  Transmission Date: 20060701
  Serious: Yes (Other)
  Sender: FDA-Public Use
  Company Number: 2006007552

PATIENT
  Sex: Female

DRUGS (3)
  1. CELEBREX [Suspect]
     Indication: PAIN
     Dosage: 200 MG (200 MG, 1 N1 D), ORAL
     Route: 048
     Dates: start: 20040101
  2. FOSAMAX [Concomitant]
  3. ALL THERAPEUTIC PRODUCTS (ALL THERAPEUTIC PRODUCTS) [Concomitant]

REACTIONS (5)
  - COELIAC DISEASE [None]
  - CONDITION AGGRAVATED [None]
  - JOINT DISLOCATION [None]
  - OSTEOPOROSIS [None]
  - SPINAL DISORDER [None]
